FAERS Safety Report 5228290-6 (Version None)
Quarter: 2007Q1

REPORT INFORMATION
  Report Type: 
  Country: None (occurrence: None)
  Receive Date: 20070131
  Receipt Date: 20070131
  Transmission Date: 20070707
  Serious: Yes (Other)
  Sender: FDA-Public Use
  Company Number: None

PATIENT
  Sex: Male
  Weight: 24.0406 kg

DRUGS (1)
  1. DURICEF [Suspect]
     Indication: STREPTOCOCCAL INFECTION
     Dosage: 500MG  2X DAY   PO
     Route: 048
     Dates: start: 20070122, end: 20070127

REACTIONS (7)
  - ABDOMINAL PAIN UPPER [None]
  - CHEST PAIN [None]
  - CONTRAINDICATION TO MEDICAL TREATMENT [None]
  - DYSPNOEA [None]
  - EPISTAXIS [None]
  - MEDICATION ERROR [None]
  - VOMITING [None]
